FAERS Safety Report 6495341-0 (Version None)
Quarter: 2009Q4

REPORT INFORMATION
  Report Type: 
  Country: None (occurrence: None)
  Receive Date: 20091214
  Receipt Date: 20090603
  Transmission Date: 20100525
  Serious: No
  Sender: FDA-Public Use
  Company Number: US-BRISTOL-MYERS SQUIBB COMPANY-14650006

PATIENT

DRUGS (2)
  1. ABILIFY [Suspect]
  2. DEPAKOTE [Suspect]

REACTIONS (3)
  - ANXIETY [None]
  - FEELING JITTERY [None]
  - HYPERSEXUALITY [None]
